FAERS Safety Report 4444139-3 (Version None)
Quarter: 2004Q3

REPORT INFORMATION
  Report Type: 
  Country: None (occurrence: None)
  Receive Date: 20040812
  Receipt Date: 20040227
  Transmission Date: 20050211
  Serious: Yes (Hospitalization)
  Sender: FDA-Public Use
  Company Number: US_0402101144

PATIENT
  Age: 25 Year
  Sex: Female
  Weight: 54 kg

DRUGS (3)
  1. NPH ILETIN I (BEEF-PORK) [Suspect]
     Indication: DIABETES MELLITUS
     Dosage: 20 U/1 DAY
     Dates: start: 19620101
  2. ILETIN [Suspect]
     Indication: BLOOD GLUCOSE INCREASED
     Dates: start: 19620101
  3. PRENATAL VITAMINS [Concomitant]

REACTIONS (1)
  - BLOOD GLUCOSE DECREASED [None]
